FAERS Safety Report 18094422 (Version 2)
Quarter: 2020Q3

REPORT INFORMATION
  Report Type: Spontaneous
  Country: IL (occurrence: IL)
  Receive Date: 20200730
  Receipt Date: 20200805
  Transmission Date: 20201103
  Serious: Yes (Other)
  Sender: FDA-Public Use
  Company Number: IL-GLAXOSMITHKLINE-IL2020EME142908

PATIENT
  Age: 68 Year
  Sex: Male

DRUGS (2)
  1. RELVAR ELLIPTA [Suspect]
     Active Substance: FLUTICASONE FUROATE\VILANTEROL TRIFENATATE
     Indication: PRODUCT USED FOR UNKNOWN INDICATION
     Dosage: UNK
  2. ASPIRIN. [Concomitant]
     Active Substance: ASPIRIN
     Indication: MYOCARDIAL ISCHAEMIA
     Dosage: UNK

REACTIONS (6)
  - Intentional product misuse [Unknown]
  - Oropharyngeal candidiasis [Unknown]
  - Dysphagia [Unknown]
  - Treatment noncompliance [Unknown]
  - Oesophageal candidiasis [Unknown]
  - Dyspnoea [Unknown]
